FAERS Safety Report 6235864-2 (Version None)
Quarter: 2009Q2

REPORT INFORMATION
  Report Type: 
  Country: None (occurrence: None)
  Receive Date: 20090617
  Receipt Date: 20090617
  Transmission Date: 20091009
  Serious: Yes (Hospitalization)
  Sender: FDA-Public Use
  Company Number: None

PATIENT
  Sex: Female
  Weight: 66.4 kg

DRUGS (7)
  1. XELODA [Suspect]
     Dosage: 58000 MG
  2. ELOXATIN [Suspect]
     Dosage: 400 MG
  3. AVALIDE [Concomitant]
  4. BONIVA [Concomitant]
  5. BYETTA [Concomitant]
  6. CRESTOR [Concomitant]
  7. DECADRON [Concomitant]

REACTIONS (3)
  - DIARRHOEA [None]
  - NAUSEA [None]
  - VOMITING [None]
